FAERS Safety Report 22101276 (Version 1)
Quarter: 2023Q1

REPORT INFORMATION
  Report Type: Spontaneous
  Country: NO (occurrence: NO)
  Receive Date: 20230316
  Receipt Date: 20230316
  Transmission Date: 20230417
  Serious: No
  Sender: FDA-Public Use
  Company Number: NO-ALKEM LABORATORIES LIMITED-NO-ALKEM-2022-06854

PATIENT

DRUGS (1)
  1. TIZANIDINE [Suspect]
     Active Substance: TIZANIDINE
     Indication: Trigeminal neuralgia
     Dosage: 18 MILLIGRAM/ DAY
     Route: 065

REACTIONS (1)
  - Drug ineffective [Unknown]
